FAERS Safety Report 8487945-0 (Version None)
Quarter: 2012Q3

REPORT INFORMATION
  Report Type: 
  Country: None (occurrence: None)
  Receive Date: 20120705
  Receipt Date: 20120626
  Transmission Date: 20120928
  Serious: Yes (Other)
  Sender: FDA-Public Use
  Company Number: PHHY2009JP19497

PATIENT
  Sex: Female
  Weight: 51 kg

DRUGS (4)
  1. DIOVAN [Suspect]
     Dosage: 80 MG, BID
     Route: 048
     Dates: start: 20081017
  2. ALMARL [Concomitant]
     Dosage: 10 MG
     Route: 048
     Dates: start: 20080919
  3. DIOVAN [Suspect]
     Indication: HYPERTENSION
     Dosage: 80 MG, QD
     Route: 048
     Dates: start: 20081003, end: 20081016
  4. RIZE [Concomitant]
     Dosage: 5 MG, UNK
     Route: 048
     Dates: start: 20081008

REACTIONS (1)
  - OCCULT BLOOD [None]
